FAERS Safety Report 6035652-6 (Version None)
Quarter: 2009Q1

REPORT INFORMATION
  Report Type: 
  Country: None (occurrence: None)
  Receive Date: 20090113
  Receipt Date: 20090107
  Transmission Date: 20090719
  Serious: Yes (Disabling, Other)
  Sender: FDA-Public Use
  Company Number: PHEH2007US02889

PATIENT
  Sex: Female
  Weight: 80.726 kg

DRUGS (7)
  1. ZOMETA [Suspect]
     Indication: METASTASES TO BONE
     Dosage: 4 MG IV MONTHLY
     Dates: start: 20021101, end: 20050901
  2. TAMOXIFEN CITRATE [Concomitant]
     Dosage: 20 MG, QD
     Route: 048
  3. XANAX [Concomitant]
     Dosage: 0.5 MG, TID
     Route: 048
  4. PAXIL [Concomitant]
     Dosage: 20 MG, QD
     Route: 048
  5. WELLBUTRIN [Concomitant]
     Dosage: 100 MG, TID
     Route: 048
  6. RESTORIL [Concomitant]
     Dosage: 15 MG, QHS
     Route: 048
  7. STEROIDS NOS [Concomitant]
     Dosage: UNK
     Dates: start: 20050101

REACTIONS (25)
  - ANXIETY [None]
  - BIOPSY BONE [None]
  - BONE DEBRIDEMENT [None]
  - BONE DISORDER [None]
  - DECREASED INTEREST [None]
  - DYSGEUSIA [None]
  - GENERAL PHYSICAL HEALTH DETERIORATION [None]
  - GINGIVAL INFECTION [None]
  - JAW OPERATION [None]
  - LOOSE TOOTH [None]
  - ORAL DISCHARGE [None]
  - OROANTRAL FISTULA [None]
  - OSTEITIS [None]
  - OSTEOMYELITIS [None]
  - OSTEONECROSIS [None]
  - PAIN [None]
  - PAIN IN JAW [None]
  - PERIODONTAL DISEASE [None]
  - POSITRON EMISSION TOMOGRAM ABNORMAL [None]
  - RESORPTION BONE INCREASED [None]
  - SINUS HEADACHE [None]
  - TEMPOROMANDIBULAR JOINT SYNDROME [None]
  - TOOTH ABSCESS [None]
  - TOOTH EXTRACTION [None]
  - TOOTH IMPACTED [None]
